FAERS Safety Report 13873180 (Version 2)
Quarter: 2017Q3

REPORT INFORMATION
  Report Type: Report from Study
  Country: BR (occurrence: BR)
  Receive Date: 20170816
  Receipt Date: 20170830
  Transmission Date: 20171127
  Serious: Yes (Death)
  Sender: FDA-Public Use
  Company Number: PHHO2017BR009677

PATIENT
  Sex: Female
  Weight: 55.5 kg

DRUGS (10)
  1. CLARITHROMYCIN. [Concomitant]
     Active Substance: CLARITHROMYCIN
     Indication: PNEUMONITIS
     Dosage: 500 MG, Q6H
     Route: 048
     Dates: start: 20170613
  2. MACRODANTIN [Concomitant]
     Active Substance: NITROFURANTOIN
     Indication: PROPHYLAXIS URINARY TRACT INFECTION
     Dosage: 100 MG, ONCE/SINGLE
     Route: 048
     Dates: start: 20151228
  3. OMEPRAZOLE. [Concomitant]
     Active Substance: OMEPRAZOLE
     Indication: GASTROOESOPHAGEAL REFLUX DISEASE
     Dosage: 40 MG, ONCE/SINGLE
     Route: 048
     Dates: start: 20150820
  4. EVEROLIMUS [Suspect]
     Active Substance: EVEROLIMUS
     Indication: BREAST CANCER METASTATIC
     Dosage: 5 MG, ONCE/SINGLE
     Route: 048
     Dates: start: 20141210, end: 20170531
  5. CGS 20267 [Suspect]
     Active Substance: LETROZOLE
     Indication: BREAST CANCER METASTATIC
     Dosage: 2.5 MG, ONCE/SINGLE
     Route: 048
     Dates: start: 20141210
  6. PREDNISONA [Concomitant]
     Active Substance: PREDNISONE
     Indication: PNEUMONITIS
     Dosage: 40 MG, ONCE/SINGLE
     Route: 048
     Dates: start: 20170613
  7. NPH INSULIN [Concomitant]
     Active Substance: INSULIN BEEF
     Indication: DIABETES MELLITUS
     Dosage: 18 U, ONCE/SINGLE
     Route: 058
     Dates: start: 2005
  8. SIMVASTATIN. [Concomitant]
     Active Substance: SIMVASTATIN
     Indication: HYPERCHOLESTEROLAEMIA
     Dosage: 40 MG, ONCE/SINGLE
     Route: 048
     Dates: start: 20151020
  9. FERROUS SULFATE. [Concomitant]
     Active Substance: FERROUS SULFATE
     Indication: ANAEMIA
     Dosage: 109 MG, BID
     Route: 048
     Dates: start: 20170413
  10. REGULAR INSULIN [Concomitant]
     Active Substance: INSULIN NOS
     Indication: DIABETES MELLITUS
     Dosage: 4 U, ONCE/SINGLE
     Route: 058
     Dates: start: 2005

REACTIONS (1)
  - Pulmonary oedema [Fatal]
